FAERS Safety Report 6658709-5 (Version None)
Quarter: 2010Q1

REPORT INFORMATION
  Report Type: 
  Country: None (occurrence: None)
  Receive Date: 20100330
  Receipt Date: 20100319
  Transmission Date: 20100710
  Serious: Yes (Hospitalization, Other)
  Sender: FDA-Public Use
  Company Number: PHHY2008CA06007

PATIENT
  Sex: Male

DRUGS (7)
  1. SANDOSTATIN LAR [Suspect]
     Indication: NEUROENDOCRINE TUMOUR
     Dosage: 40 MG EVERY 4 WEEKS
     Route: 030
     Dates: start: 20050520
  2. WARFARIN SODIUM [Concomitant]
     Dosage: UNK, QD
  3. BISOPROLOL [Concomitant]
  4. MONOCARD [Concomitant]
  5. MULTI-VITAMINS [Concomitant]
     Dosage: UNK, QD
  6. GRAPE SEED EXTRACT [Concomitant]
  7. PHYTO IMMUNE [Concomitant]

REACTIONS (10)
  - BACK PAIN [None]
  - CARDIAC PACEMAKER INSERTION [None]
  - CELLULITIS [None]
  - ELECTROCARDIOGRAM AMBULATORY [None]
  - HEART RATE IRREGULAR [None]
  - LOSS OF CONSCIOUSNESS [None]
  - OEDEMA PERIPHERAL [None]
  - PRESYNCOPE [None]
  - SICK SINUS SYNDROME [None]
  - SYNCOPE [None]
